FAERS Safety Report 10878825 (Version 2)
Quarter: 2019Q1

REPORT INFORMATION
  Report Type: Report from Study
  Country: DE (occurrence: DE)
  Receive Date: 20150302
  Receipt Date: 20190119
  Transmission Date: 20190417
  Serious: Yes (Disabling)
  Sender: FDA-Public Use
  Company Number: DE-IPSEN BIOPHARMACEUTICALS, INC.-2015-3310

PATIENT
  Age: 78 Year
  Sex: Female

DRUGS (1)
  1. DYSPORT [Suspect]
     Active Substance: ABOBOTULINUMTOXINA
     Indication: MUSCLE SPASTICITY
     Dosage: 300 OR 500 UNITS
     Route: 030
     Dates: start: 20150128, end: 20150128

REACTIONS (1)
  - Listless [Recovering/Resolving]

NARRATIVE: CASE EVENT DATE: 201502
